FAERS Safety Report 5179255-4 (Version None)
Quarter: 2006Q4

REPORT INFORMATION
  Report Type: 
  Country: None (occurrence: None)
  Receive Date: 20061211
  Receipt Date: 20061129
  Transmission Date: 20070319
  Serious: Yes (Other)
  Sender: FDA-Public Use
  Company Number: 150418USA

PATIENT
  Age: 47 Year
  Sex: Female

DRUGS (6)
  1. DOXORUBICIN HYDROCHLORIDE [Suspect]
     Indication: BREAST CANCER
     Dosage: 8 CYCLES, DAY 1 (40 MG/M2), INTRAVENOUS
     Route: 042
     Dates: start: 19910101
  2. CYCLOPHOSPHAMIDE [Suspect]
     Indication: BREAST CANCER
     Dosage: 8 CYCLES, DAY 1 - 7 (100 MG/M2, 1 IN 1 D), ORAL
     Route: 048
     Dates: start: 19910101
  3. VINCRISTINE [Suspect]
     Indication: BREAST CANCER
     Dosage: 8 CYCLES, DAY 1 (1 MG), INTRAVENOUS
     Route: 042
     Dates: start: 19910101
  4. METHOTREXATE [Suspect]
     Indication: BREAST CANCER
     Dosage: 8 CYCLES, DAY 1 (100 MG/M2), INTRAVENOUS
     Route: 042
     Dates: start: 19910101
  5. FLUOROURACIL [Suspect]
     Indication: BREAST CANCER
     Dosage: 8 CYCLES, DAY 2 (600 MG/M2), INTRAVENOUS
     Route: 042
     Dates: start: 19910101
  6. FOLINIC ACID [Suspect]
     Indication: BREAST CANCER
     Dosage: 8 CYCLES (1 IN 2 WK), ORAL
     Route: 048

REACTIONS (2)
  - LIP AND/OR ORAL CAVITY CANCER [None]
  - SQUAMOUS CELL CARCINOMA [None]
